FAERS Safety Report 5051853-8 (Version None)
Quarter: 2006Q3

REPORT INFORMATION
  Report Type: 
  Country: None (occurrence: None)
  Receive Date: 20060714
  Receipt Date: 20060705
  Transmission Date: 20061208
  Serious: Yes (Other)
  Sender: FDA-Public Use
  Company Number: NL-ABBOTT-06P-114-0337684-00

PATIENT
  Sex: Female

DRUGS (17)
  1. TIPRANAVIR+RITONAVIR [Suspect]
     Indication: DRUG EXPOSURE DURING PREGNANCY
  2. TIPRANAVIR+RITONAVIR [Suspect]
     Indication: PROPHYLAXIS
  3. BOOSTED LOPINAVIR [Suspect]
     Indication: PROPHYLAXIS
  4. NEVIRAPINE [Suspect]
     Indication: DRUG EXPOSURE DURING PREGNANCY
  5. ZIDOVUDINE [Suspect]
     Indication: DRUG EXPOSURE DURING PREGNANCY
  6. ZIDOVUDINE [Suspect]
  7. LAMIVUDINE [Suspect]
     Indication: PROPHYLAXIS
  8. LAMIVUDINE [Suspect]
  9. ABACAVIR [Suspect]
     Indication: DRUG EXPOSURE DURING PREGNANCY
  10. ABACAVIR [Suspect]
  11. TENOFOVIR [Suspect]
     Indication: DRUG EXPOSURE DURING PREGNANCY
  12. TENOFOVIR [Suspect]
  13. ENFUVIRTIDE [Suspect]
     Indication: DRUG EXPOSURE DURING PREGNANCY
  14. ENFUVIRTIDE [Suspect]
  15. STAVUDINE [Suspect]
     Indication: DRUG EXPOSURE DURING PREGNANCY
  16. NEVIRAPINE [Concomitant]
     Indication: PROPHYLAXIS
  17. NEVIRAPINE [Concomitant]

REACTIONS (4)
  - DRUG EXPOSURE DURING PREGNANCY [None]
  - HAEMOGLOBIN DECREASED [None]
  - NEONATAL DISORDER [None]
  - PREMATURE BABY [None]
